FAERS Safety Report 6294788-5 (Version None)
Quarter: 2009Q3

REPORT INFORMATION
  Report Type: 
  Country: None (occurrence: None)
  Receive Date: 20090731
  Receipt Date: 20090731
  Transmission Date: 20100115
  Serious: Yes (Hospitalization, Disabling)
  Sender: FDA-Public Use
  Company Number: None

PATIENT
  Sex: Female
  Weight: 29 kg

DRUGS (5)
  1. IFOSFAMIDE [Suspect]
     Indication: BONE SARCOMA
     Dosage: 3080 MG DAILY IV
     Route: 042
     Dates: start: 20090729, end: 20090729
  2. ETOPOSIDE [Concomitant]
  3. DEXAMETHASONE [Concomitant]
  4. MESNA [Concomitant]
  5. ONDANSETRON [Concomitant]

REACTIONS (5)
  - AFFECT LABILITY [None]
  - DISORIENTATION [None]
  - FALL [None]
  - TELANGIECTASIA [None]
  - TREMOR [None]
